FAERS Safety Report 18356668 (Version 1)
Quarter: 2020Q4

REPORT INFORMATION
  Report Type: Spontaneous
  Country: US (occurrence: US)
  Receive Date: 20201007
  Receipt Date: 20201007
  Transmission Date: 20210114
  Serious: No
  Sender: FDA-Public Use
  Company Number: US-SPROUT PHARMACEUTICALS, INC.-2020SP000017

PATIENT
  Age: 64 Year
  Sex: Female
  Weight: 54.48 kg

DRUGS (7)
  1. ADDYI [Suspect]
     Active Substance: FLIBANSERIN
     Indication: LIBIDO DECREASED
     Dates: start: 202001
  2. ARMOUR THYROID [Concomitant]
     Active Substance: THYROID, PORCINE
  3. COENZYME Q10 [Concomitant]
     Active Substance: DIETARY SUPPLEMENT\UBIDECARENONE
  4. IBUPROFEN. [Concomitant]
     Active Substance: IBUPROFEN
  5. ESTROGEN-PROGESTERONE [Concomitant]
  6. RESTORIL [Concomitant]
     Active Substance: TEMAZEPAM
  7. CRESTOR [Concomitant]
     Active Substance: ROSUVASTATIN CALCIUM

REACTIONS (1)
  - Nipple pain [Not Recovered/Not Resolved]

NARRATIVE: CASE EVENT DATE: 202001
